FAERS Safety Report 6997699-2 (Version None)
Quarter: 2010Q3

REPORT INFORMATION
  Report Type: 
  Country: None (occurrence: None)
  Receive Date: 20100918
  Receipt Date: 20091118
  Transmission Date: 20110219
  Serious: No
  Sender: FDA-Public Use
  Company Number: US-WYE-H12232609

PATIENT
  Sex: Male

DRUGS (20)
  1. PRISTIQ [Suspect]
     Indication: DEPRESSION
     Route: 048
     Dates: start: 20091117
  2. CARVEDILOL [Concomitant]
  3. ASPIRIN [Concomitant]
  4. PLAVIX [Concomitant]
  5. METFORMIN [Concomitant]
  6. JANUVIA [Concomitant]
  7. GLIPIZIDE [Concomitant]
  8. SIMVASTATIN [Concomitant]
  9. NIASPAN [Concomitant]
  10. SYNTHROID [Concomitant]
  11. DOXAZOSIN MESYLATE [Concomitant]
  12. SPIRIVA [Concomitant]
  13. NASONEX [Concomitant]
  14. VITAMIN B [Concomitant]
  15. CALCIUM [Concomitant]
  16. METAMUCIL-2 [Concomitant]
  17. ISOSORBIDE MONONITRATE [Concomitant]
  18. CENTRUM SILVER [Concomitant]
  19. ERGOCALCIFEROL [Concomitant]
  20. DIOVAN [Concomitant]

REACTIONS (1)
  - DIARRHOEA [None]
